FAERS Safety Report 10062524 (Version 1)
Quarter: 2014Q2

REPORT INFORMATION
  Report Type: Spontaneous
  Country: FR (occurrence: FR)
  Receive Date: 20140407
  Receipt Date: 20140407
  Transmission Date: 20141212
  Serious: Yes (Other)
  Sender: FDA-Public Use
  Company Number: FR-TEVA-472609ISR

PATIENT
  Sex: 0

DRUGS (1)
  1. COPAXONE [Suspect]
     Route: 064

REACTIONS (2)
  - Brain hypoxia [Unknown]
  - Ischaemic stroke [Unknown]
